FAERS Safety Report 9406318 (Version 1)
Quarter: 2013Q3

REPORT INFORMATION
  Report Type: Report from Study
  Country: NL (occurrence: NL)
  Receive Date: 20130717
  Receipt Date: 20130717
  Transmission Date: 20140515
  Serious: Yes (Hospitalization)
  Sender: FDA-Public Use
  Company Number: NL-TEVA-419035ISR

PATIENT
  Age: 62 Year
  Sex: Female

DRUGS (6)
  1. MYOCET [Suspect]
     Indication: BREAST CANCER METASTATIC
     Dosage: 95 MILLIGRAM DAILY;
     Route: 042
     Dates: start: 20130320, end: 20130607
  2. PACLITAXEL [Suspect]
     Indication: BREAST CANCER METASTATIC
     Dosage: 141 MILLIGRAM DAILY;
     Route: 042
     Dates: start: 20111215, end: 20121228
  3. BEVACIZUMAB [Suspect]
     Indication: BREAST CANCER METASTATIC
     Dosage: 885  DAILY;
     Route: 042
     Dates: start: 20111215, end: 20120830
  4. THYRAX [Concomitant]
     Dosage: 75 MICROGRAM DAILY;
     Dates: start: 20060101
  5. PANTOZOL [Concomitant]
     Dosage: 40 MILLIGRAM DAILY;
     Dates: start: 20060101
  6. APROVEL [Concomitant]
     Dosage: 150 MILLIGRAM DAILY;
     Dates: start: 20120717

REACTIONS (10)
  - Metastases to liver [Unknown]
  - Malaise [Recovered/Resolved]
  - Fatigue [Recovered/Resolved]
  - Dizziness [Recovered/Resolved]
  - Dehydration [Recovered/Resolved]
  - Pyrexia [Recovered/Resolved]
  - Stomatitis [Recovered/Resolved]
  - Orthostatic hypotension [Recovered/Resolved]
  - Pancytopenia [Recovered/Resolved]
  - Disease progression [Unknown]
